FAERS Safety Report 5383101-3 (Version None)
Quarter: 2007Q3

REPORT INFORMATION
  Report Type: 
  Country: None (occurrence: None)
  Receive Date: 20070710
  Receipt Date: 20070702
  Transmission Date: 20080115
  Serious: Yes (Other)
  Sender: FDA-Public Use
  Company Number: US-MERCK-0705USA00498

PATIENT
  Age: 79 Year
  Sex: Female
  Weight: 48 kg

DRUGS (20)
  1. ZOLINZA [Suspect]
     Indication: MYCOSIS FUNGOIDES
     Route: 048
     Dates: start: 20070410, end: 20070415
  2. ZOLINZA [Suspect]
     Route: 048
     Dates: start: 20070417
  3. ZOLINZA [Suspect]
     Route: 048
     Dates: start: 20070403
  4. BONIVA [Concomitant]
     Route: 065
  5. DIGOXIN [Concomitant]
     Route: 065
  6. RANITIDINE [Concomitant]
     Route: 065
  7. METFORMIN [Concomitant]
     Route: 065
  8. NORVASC [Concomitant]
     Route: 065
  9. LIPITOR [Concomitant]
     Route: 065
  10. TRICOR [Concomitant]
     Route: 065
  11. HYDROXYZINE HYDROCHLORIDE [Concomitant]
     Route: 065
  12. SYNTHROID [Concomitant]
     Route: 065
  13. CLOBETASOL PROPIONATE [Concomitant]
     Route: 065
  14. TRIAMCINOLONE [Concomitant]
     Route: 065
  15. FLUOCINOLONE ACETONIDE [Concomitant]
     Route: 065
  16. VITAMIN E [Concomitant]
     Route: 065
  17. ASCORBIC ACID [Concomitant]
     Route: 065
  18. CALCIUM (UNSPECIFIED) [Concomitant]
     Route: 065
  19. DOCUSATE SODIUM [Concomitant]
     Route: 065
  20. COMPAZINE [Concomitant]
     Route: 065

REACTIONS (16)
  - ANOREXIA [None]
  - CHEST DISCOMFORT [None]
  - COLD SWEAT [None]
  - CONSTIPATION [None]
  - DISCOMFORT [None]
  - DRUG TOXICITY [None]
  - DYSPNOEA [None]
  - FATIGUE [None]
  - FLANK PAIN [None]
  - HEART RATE ABNORMAL [None]
  - MUSCULAR WEAKNESS [None]
  - NAUSEA [None]
  - OEDEMA PERIPHERAL [None]
  - RESTLESSNESS [None]
  - VOMITING [None]
  - WEIGHT DECREASED [None]
